FAERS Safety Report 14858868 (Version 3)
Quarter: 2021Q4

REPORT INFORMATION
  Report Type: Spontaneous
  Country: US (occurrence: US)
  Receive Date: 20180508
  Receipt Date: 20211029
  Transmission Date: 20220303
  Serious: Yes (Disabling, Other)
  Sender: FDA-Public Use
  Company Number: US-TEVA-804510USA

PATIENT
  Age: 67 Year
  Sex: Female
  Weight: 52.1 kg

DRUGS (11)
  1. DOCETAXEL [Suspect]
     Active Substance: DOCETAXEL
     Indication: Invasive ductal breast carcinoma
     Dosage: DOSAGE: 75 MG/M2, FREQUENCY: EVERY 3 WEEKS, NO OF CYCLES: 06
     Route: 042
     Dates: start: 20131227, end: 20140228
  2. DOCETAXEL [Suspect]
     Active Substance: DOCETAXEL
     Dosage: DOSAGE: 75 MG/M2, FREQUENCY: EVERY 3 WEEKS, NO OF CYCLES: 06
     Route: 042
     Dates: start: 20130227, end: 20140228
  3. CARBOPLATIN [Suspect]
     Active Substance: CARBOPLATIN
     Indication: Invasive ductal breast carcinoma
     Dosage: FREQUENCY: EVERY 3 WEEKS
     Route: 042
     Dates: start: 20140207, end: 20140207
  4. CARBOPLATIN [Suspect]
     Active Substance: CARBOPLATIN
     Dosage: FREQUENCY: EVERY 3 WEEKS
     Route: 042
     Dates: start: 20140228, end: 20140228
  5. DOCETAXEL [Suspect]
     Active Substance: DOCETAXEL
     Indication: Invasive ductal breast carcinoma
     Dosage: DOSAGE: 75 MG/M2, FREQUENCY: EVERY 3 WEEKS, NO OF CYCLES: 06
     Route: 042
     Dates: start: 20131111, end: 20131203
  6. DOCETAXEL [Suspect]
     Active Substance: DOCETAXEL
     Dosage: DOSAGE: 75 MG/M2, FREQUENCY: EVERY 3 WEEKS, NO OF CYCLES: 06
     Route: 042
     Dates: start: 20131111, end: 20131203
  7. TRASTUZUMAB [Suspect]
     Active Substance: TRASTUZUMAB
     Indication: Invasive ductal breast carcinoma
     Dosage: FREQUENCY: EVERY 3 WEEKS
     Route: 042
     Dates: start: 20131111, end: 20140530
  8. PERTUZUMAB [Suspect]
     Active Substance: PERTUZUMAB
     Indication: Invasive ductal breast carcinoma
     Dosage: FREQUENCY: EVERY 3 WEEKS, NO OF CYCLES: 06
     Route: 042
     Dates: start: 20131111, end: 20140228
  9. FISH OIL [Concomitant]
     Active Substance: FISH OIL
     Dosage: TAKEN BY MOUTH
     Route: 048
  10. VITAMINS [Concomitant]
     Active Substance: VITAMINS
     Route: 048
  11. HOMEOPATHICS [Concomitant]
     Active Substance: HOMEOPATHICS
     Route: 061

REACTIONS (28)
  - Alopecia totalis [Not Recovered/Not Resolved]
  - Alopecia areata [Not Recovered/Not Resolved]
  - Madarosis [Not Recovered/Not Resolved]
  - Neuropathy peripheral [Not Recovered/Not Resolved]
  - Hair colour changes [Not Recovered/Not Resolved]
  - Hair texture abnormal [Not Recovered/Not Resolved]
  - Flushing [Unknown]
  - Arthralgia [Not Recovered/Not Resolved]
  - Myalgia [Unknown]
  - Nausea [Recovering/Resolving]
  - Rash erythematous [Not Recovered/Not Resolved]
  - Lacrimation increased [Not Recovered/Not Resolved]
  - Neck pain [Not Recovered/Not Resolved]
  - Hypoaesthesia [Not Recovered/Not Resolved]
  - Rhinorrhoea [Unknown]
  - Nasal congestion [Not Recovered/Not Resolved]
  - Dyspepsia [Recovering/Resolving]
  - Muscle spasms [Unknown]
  - Diarrhoea [Recovering/Resolving]
  - Abdominal pain [Recovering/Resolving]
  - Vitamin D deficiency [Unknown]
  - Eye infection [Unknown]
  - Fall [Unknown]
  - Contusion [Not Recovered/Not Resolved]
  - Tenderness [Not Recovered/Not Resolved]
  - Fatigue [Unknown]
  - Stomatitis [Unknown]
  - Paraesthesia [Not Recovered/Not Resolved]

NARRATIVE: CASE EVENT DATE: 20131101
